FAERS Safety Report 18710118 (Version 1)
Quarter: 2021Q1

REPORT INFORMATION
  Report Type: Report from Study
  Country: US (occurrence: US)
  Receive Date: 20210106
  Receipt Date: 20210106
  Transmission Date: 20210419
  Serious: Yes (Hospitalization, Other)
  Sender: FDA-Public Use
  Company Number: US-JNJFOC-20200405388

PATIENT
  Age: 18 Year
  Sex: Female
  Weight: 95.7 kg

DRUGS (18)
  1. RILPIVIRINE [Suspect]
     Active Substance: RILPIVIRINE
     Indication: HIV INFECTION
     Dosage: QD
     Route: 048
     Dates: start: 20191219
  2. INDINAVIR [Concomitant]
     Active Substance: INDINAVIR
  3. AQUAPHOR                           /01675601/ [Concomitant]
  4. KEFLEX [Concomitant]
     Active Substance: CEPHALEXIN
  5. DOLUTEGRAVIR [Suspect]
     Active Substance: DOLUTEGRAVIR
     Indication: HIV INFECTION
     Dosage: QD
     Route: 048
     Dates: start: 20191219
  6. SODIUM CHLORIDE. [Concomitant]
     Active Substance: SODIUM CHLORIDE
  7. ZOSYN [Concomitant]
     Active Substance: PIPERACILLIN SODIUM\TAZOBACTAM SODIUM
  8. ATAZANAVIR. [Concomitant]
     Active Substance: ATAZANAVIR
  9. ZYRTEC [Concomitant]
     Active Substance: CETIRIZINE HYDROCHLORIDE
  10. AUGMENTIN [Concomitant]
     Active Substance: AMOXICILLIN\CLAVULANATE POTASSIUM
  11. FLONASE [Concomitant]
     Active Substance: FLUTICASONE PROPIONATE
  12. MACROBID [Concomitant]
     Active Substance: NITROFURANTOIN\NITROFURANTOIN MONOHYDRATE
  13. LOVENOX [Concomitant]
     Active Substance: ENOXAPARIN SODIUM
  14. KENALOG [Concomitant]
     Active Substance: TRIAMCINOLONE ACETONIDE
  15. EMTRICITABINE W/TENOFOVIR ALAFENAMIDE [Suspect]
     Active Substance: EMTRICITABINE\TENOFOVIR ALAFENAMIDE FUMARATE
     Indication: HIV INFECTION
     Dosage: QD
     Route: 048
     Dates: start: 20191219
  16. DOCOSANOL [Concomitant]
     Active Substance: DOCOSANOL
  17. VITAMIN D2 [Concomitant]
     Active Substance: ERGOCALCIFEROL
  18. IBUPROFEN. [Concomitant]
     Active Substance: IBUPROFEN

REACTIONS (1)
  - Nephrolithiasis [Recovering/Resolving]

NARRATIVE: CASE EVENT DATE: 20200320
